FAERS Safety Report 4684628-X (Version None)
Quarter: 2005Q2

REPORT INFORMATION
  Report Type: 
  Country: None (occurrence: None)
  Receive Date: 20050603
  Receipt Date: 20050525
  Transmission Date: 20051028
  Serious: Yes (Hospitalization, Other)
  Sender: FDA-Public Use
  Company Number: 2005-05-1996

PATIENT
  Age: 46 Year
  Sex: Male

DRUGS (8)
  1. GENTAMICIN [Suspect]
     Indication: AORTIC DISORDER
     Dates: start: 20040301, end: 20040401
  2. GENTAMICIN [Suspect]
     Indication: ENDOCARDITIS
     Dates: start: 20040301, end: 20040401
  3. GENTAMICIN [Suspect]
     Indication: AORTIC DISORDER
     Dates: start: 20040301
  4. GENTAMICIN [Suspect]
     Indication: ENDOCARDITIS
     Dates: start: 20040301
  5. GENTAMICIN [Suspect]
     Indication: AORTIC DISORDER
     Dates: start: 20040418
  6. GENTAMICIN [Suspect]
     Indication: ENDOCARDITIS
     Dates: start: 20040418
  7. VANCOMYCIN [Suspect]
     Indication: AORTIC DISORDER
     Dates: start: 20040301
  8. VANCOMYCIN [Suspect]
     Indication: ENDOCARDITIS
     Dates: start: 20040301

REACTIONS (10)
  - ANXIETY [None]
  - BRAIN ABSCESS [None]
  - CONFUSIONAL STATE [None]
  - DIALYSIS [None]
  - EMOTIONAL DISORDER [None]
  - MENINGISM [None]
  - PYREXIA [None]
  - RASH GENERALISED [None]
  - RENAL IMPAIRMENT [None]
  - WHITE BLOOD CELL COUNT INCREASED [None]
